FAERS Safety Report 4354193-5 (Version None)
Quarter: 2004Q2

REPORT INFORMATION
  Report Type: 
  Country: None (occurrence: None)
  Receive Date: 20040506
  Receipt Date: 20040415
  Transmission Date: 20050107
  Serious: Yes (Life-Threatening, Hospitalization)
  Sender: FDA-Public Use
  Company Number: US-MERCK-0404USA01621

PATIENT
  Age: 82 Year
  Sex: Female

DRUGS (6)
  1. LISINOPRIL [Concomitant]
     Route: 065
  2. TOPROL-XL [Concomitant]
     Route: 065
  3. PROTONIX [Concomitant]
     Route: 065
  4. EXELON [Concomitant]
     Route: 065
  5. VIOXX [Suspect]
     Indication: OSTEOARTHRITIS
     Route: 048
     Dates: start: 20040304, end: 20040314
  6. ZOCOR [Concomitant]
     Route: 065

REACTIONS (4)
  - ACUTE PULMONARY OEDEMA [None]
  - HYPERTENSION [None]
  - LEFT VENTRICULAR FAILURE [None]
  - VENTRICULAR DYSFUNCTION [None]
